FAERS Safety Report 23365632 (Version 1)
Quarter: 2024Q1

REPORT INFORMATION
  Report Type: Spontaneous
  Country: CH (occurrence: CH)
  Receive Date: 20240104
  Receipt Date: 20240104
  Transmission Date: 20240410
  Serious: Yes (Life-Threatening)
  Sender: FDA-Public Use
  Company Number: None

PATIENT

DRUGS (9)
  1. VENTOLIN [Suspect]
     Active Substance: ALBUTEROL SULFATE
     Indication: Asthmatic crisis
     Dosage: 5 MG, 5 MG/AEROSOLS. SESSION REPEATED. GOING ON.
     Route: 055
     Dates: start: 20231127
  2. ATROVENT [Suspect]
     Active Substance: IPRATROPIUM BROMIDE
     Indication: Asthmatic crisis
     Dosage: 250 ?G, 250 MCG/REPEATED AEROSOLS SESSION.
     Route: 055
     Dates: start: 20231128, end: 20231130
  3. CLARITHROMYCIN [Suspect]
     Active Substance: CLARITHROMYCIN
     Indication: Cough
     Dosage: 135 MG, BID
     Route: 048
     Dates: start: 20231127, end: 20231128
  4. AZITHROMYCIN [Suspect]
     Active Substance: AZITHROMYCIN
     Indication: Cough
     Dosage: 180 MG
     Route: 048
     Dates: start: 20231128, end: 20231128
  5. ACETYLCYSTEINE [Suspect]
     Active Substance: ACETYLCYSTEINE
     Indication: Asthmatic crisis
     Dosage: 180 MG
     Route: 048
     Dates: start: 20231128, end: 202311
  6. ACETYLCYSTEINE [Suspect]
     Active Substance: ACETYLCYSTEINE
     Dosage: 180 MG
     Route: 042
     Dates: start: 20231128, end: 20231130
  7. PREDNISONE [Concomitant]
     Active Substance: PREDNISONE
     Indication: Asthmatic crisis
     Dosage: 36 MG
     Route: 048
     Dates: start: 20231128, end: 20231128
  8. PREDNISONE [Concomitant]
     Active Substance: PREDNISONE
     Dosage: 18 MG
     Route: 048
     Dates: start: 20231128, end: 20231128
  9. PREDNISONE [Concomitant]
     Active Substance: PREDNISONE
     Dosage: 18 MG
     Route: 042
     Dates: start: 20231128

REACTIONS (1)
  - Supraventricular tachycardia [Recovered/Resolved]

NARRATIVE: CASE EVENT DATE: 20231128
